FAERS Safety Report 9204098 (Version 1)
Quarter: 2013Q1

REPORT INFORMATION
  Report Type: Spontaneous
  Country: US (occurrence: None)
  Receive Date: 20130329
  Receipt Date: 20130329
  Transmission Date: 20140127
  Serious: Yes (Other)
  Sender: FDA-Public Use
  Company Number: None

PATIENT
  Age: 42 Year
  Sex: Female

DRUGS (1)
  1. AVONEX [Suspect]
     Indication: MULTIPLE SCLEROSIS
     Route: 030
     Dates: start: 20130206, end: 20130212

REACTIONS (6)
  - Multiple sclerosis relapse [None]
  - Sensation of heaviness [None]
  - Muscular weakness [None]
  - Insomnia [None]
  - Injection site bruising [None]
  - Injection site mass [None]
